FAERS Safety Report 9994350 (Version 3)
Quarter: 2014Q2

REPORT INFORMATION
  Report Type: Spontaneous
  Country: US (occurrence: US)
  Receive Date: 20140311
  Receipt Date: 20140617
  Transmission Date: 20141212
  Serious: Yes (Death, Life-Threatening, Hospitalization, Disabling, Other)
  Sender: FDA-Public Use
  Company Number: US-MERCK-1403USA003138

PATIENT
  Age: 82 Year
  Sex: Female
  Weight: 69 kg

DRUGS (28)
  1. INVANZ [Suspect]
     Indication: SEPSIS
     Dosage: 1 G, QD
     Route: 042
     Dates: start: 20140303, end: 20140304
  2. INVANZ [Suspect]
     Indication: INTERVERTEBRAL DISCITIS
  3. PROVENTIL [Concomitant]
     Dosage: UNK
  4. VANCOMYCIN [Concomitant]
     Dosage: UNK
  5. TYLENOL [Concomitant]
     Dosage: UNK
  6. MAALOX (ALUMINUM HYDROXIDE (+) MAGNESIUM HYDROXIDE (+) SIMETHICONE) [Concomitant]
  7. BISACODYL [Concomitant]
     Route: 054
  8. LOVENOX [Concomitant]
     Dosage: UNK
  9. FENTANYL [Concomitant]
     Dosage: UNK
  10. FLONASE [Concomitant]
     Dosage: UNK
  11. INSULIN [Concomitant]
     Dosage: UNK
  12. ATROVENT [Concomitant]
     Dosage: UNK
     Route: 055
  13. LEVOQUIN [Concomitant]
     Dosage: UNK
  14. ATIVAN [Concomitant]
     Dosage: UNK
  15. MAGNESIA [MILK OF] [Concomitant]
     Dosage: UNK
  16. TOPRAL [Concomitant]
     Dosage: UNK
  17. MORPHINE [Concomitant]
     Dosage: UNK
     Route: 042
  18. VITAMINS (UNSPECIFIED) [Concomitant]
     Dosage: UNK
  19. NIACIN [Concomitant]
     Dosage: UNK
  20. ZOFRAN [Concomitant]
     Route: 042
  21. OXYCODONE [Concomitant]
     Dosage: UNK, PRN
  22. PROTONIX [Concomitant]
     Dosage: UNK
  23. PAXIL [Concomitant]
     Dosage: UNK
  24. POTASSIUM CHLORIDE [Concomitant]
     Dosage: UNK
  25. PYRIDOSTIGMINE BROMIDE [Concomitant]
     Dosage: UNK
     Route: 048
  26. SIMETHICONE [Concomitant]
     Dosage: UNK
  27. FLEET ENEMA [Concomitant]
     Dosage: UNK, PRN
  28. CHLORHEXIDINE ACETATE [Concomitant]
     Dosage: UNK
     Route: 048

REACTIONS (8)
  - Acute hepatic failure [Fatal]
  - Resuscitation [Unknown]
  - Acute myocardial infarction [Fatal]
  - Sepsis [Fatal]
  - Organ failure [Fatal]
  - Hepatic failure [Fatal]
  - Metabolic disorder [Fatal]
  - Multi-organ failure [Unknown]
